FAERS Safety Report 4651682-0 (Version None)
Quarter: 2005Q2

REPORT INFORMATION
  Report Type: 
  Country: None (occurrence: None)
  Receive Date: 20050502
  Receipt Date: 20050418
  Transmission Date: 20051028
  Serious: Yes (Other)
  Sender: FDA-Public Use
  Company Number: 2005061466

PATIENT
  Age: 51 Year
  Sex: Female
  Weight: 97.0698 kg

DRUGS (18)
  1. BEXTRA [Suspect]
     Indication: ARTHRITIS
     Dosage: 10 MG (10 MG, 1 IN 1 D), ORAL
     Route: 048
     Dates: end: 20050415
  2. NEURONTIN [Suspect]
     Indication: HYPOAESTHESIA
     Dosage: 900 MG (300 MG, 3 IN 1 D), ORAL
     Route: 048
     Dates: start: 20000101, end: 20050101
  3. NEURONTIN [Suspect]
     Indication: PARAESTHESIA
     Dosage: 900 MG (300 MG, 3 IN 1 D), ORAL
     Route: 048
     Dates: start: 20000101, end: 20050101
  4. ATENOLOL [Concomitant]
  5. LISINOPRIL [Concomitant]
  6. POTASSIUM ACETATE [Concomitant]
  7. INSULIN GLARGINE (INSULIN GLARGINE) [Concomitant]
  8. INSULIN LISPRO (INSULIN LISPRO) [Concomitant]
  9. OXYCODONE HCL [Concomitant]
  10. VICODIN [Concomitant]
  11. CLONAZEPAM [Concomitant]
  12. TEMAZEPAM [Concomitant]
  13. CLOPIDOGREL BISULFATE [Concomitant]
  14. LANSOPRAZOLE [Concomitant]
  15. PANCRELIPASE (PANCRELIPASE) [Concomitant]
  16. PAROXETINE HCL [Concomitant]
  17. ALL OTHER THERAPEUTIC PRODUCTS (ALL OTHER THERAPEUTIC PRODUCTS) [Concomitant]
  18. CARBIDOPA (CARBIDOPA) [Concomitant]

REACTIONS (8)
  - COUGH [None]
  - GINGIVAL DISORDER [None]
  - GINGIVAL PAIN [None]
  - GINGIVAL SWELLING [None]
  - GINGIVITIS [None]
  - IMPAIRED HEALING [None]
  - NAUSEA [None]
  - ORAL MUCOSAL EXFOLIATION [None]
